FAERS Safety Report 20327704 (Version 4)
Quarter: 2025Q1

REPORT INFORMATION
  Report Type: Spontaneous
  Country: US (occurrence: US)
  Receive Date: 20220112
  Receipt Date: 20250217
  Transmission Date: 20250408
  Serious: Yes (Other)
  Sender: PFIZER
  Company Number: US-PFIZER INC-2021274389

PATIENT
  Age: 74 Year
  Sex: Female

DRUGS (4)
  1. IBRANCE [Suspect]
     Active Substance: PALBOCICLIB
  2. IBRANCE [Suspect]
     Active Substance: PALBOCICLIB
  3. IBRANCE [Suspect]
     Active Substance: PALBOCICLIB
  4. IBRANCE [Suspect]
     Active Substance: PALBOCICLIB
     Route: 048

REACTIONS (13)
  - Type 2 diabetes mellitus [Unknown]
  - Agranulocytosis [Unknown]
  - Fatigue [Unknown]
  - Investigation abnormal [Unknown]
  - White blood cell count decreased [Unknown]
  - Joint range of motion decreased [Unknown]
  - Vitamin B12 deficiency [Unknown]
  - Anaemia [Unknown]
  - Hypertension [Unknown]
  - Memory impairment [Unknown]
  - Product dose omission issue [Unknown]
  - Off label use [Unknown]
  - Product use issue [Unknown]
